FAERS Safety Report 8521345-X (Version None)
Quarter: 2012Q3

REPORT INFORMATION
  Report Type: 
  Country: None (occurrence: None)
  Receive Date: 20120719
  Receipt Date: 20120710
  Transmission Date: 20120928
  Serious: Yes (Other)
  Sender: FDA-Public Use
  Company Number: CA-FRI-1000037181

PATIENT
  Sex: Male

DRUGS (1)
  1. ROFLUMILAST [Suspect]

REACTIONS (1)
  - PNEUMOTHORAX [None]
